FAERS Safety Report 21723883 (Version 1)
Quarter: 2022Q4

REPORT INFORMATION
  Report Type: Spontaneous
  Country: US (occurrence: None)
  Receive Date: 20221213
  Receipt Date: 20221213
  Transmission Date: 20230113
  Serious: Yes (Disabling)
  Sender: FDA-Public Use
  Company Number: None

PATIENT
  Age: 20 Year
  Sex: Female
  Weight: 83.91 kg

DRUGS (3)
  1. MIRENA [Suspect]
     Active Substance: LEVONORGESTREL
  2. Multivitamin (Ritual) [Concomitant]
  3. VITAMIN D3 [Concomitant]
     Active Substance: CHOLECALCIFEROL

REACTIONS (9)
  - Complication associated with device [None]
  - Pain [None]
  - Muscle spasms [None]
  - Vaginal haemorrhage [None]
  - Suicidal ideation [None]
  - Major depression [None]
  - Drug ineffective [None]
  - Mental impairment [None]
  - Product complaint [None]

NARRATIVE: CASE EVENT DATE: 20211112
